FAERS Safety Report 10342258 (Version 1)
Quarter: 2014Q3

REPORT INFORMATION
  Report Type: Spontaneous
  Country: JP (occurrence: JP)
  Receive Date: 20140725
  Receipt Date: 20140725
  Transmission Date: 20150326
  Serious: Yes (Other)
  Sender: FDA-Public Use
  Company Number: JP-SA-2014SA098791

PATIENT
  Age: 60 Year
  Sex: Male

DRUGS (1)
  1. BCG FOR IMMUNOTHERAPY [Suspect]
     Active Substance: BCG VACCINE
     Indication: BLADDER CANCER
     Route: 043

REACTIONS (8)
  - Renal mass [Unknown]
  - Pyrexia [Unknown]
  - Tubulointerstitial nephritis [Unknown]
  - Lymphocytic infiltration [Unknown]
  - Granuloma [Unknown]
  - Vomiting [Unknown]
  - Renal tuberculosis [Unknown]
  - Pyelonephritis [Unknown]
